FAERS Safety Report 7910316-X (Version None)
Quarter: 2011Q4

REPORT INFORMATION
  Report Type: 
  Country: None (occurrence: None)
  Receive Date: 20111111
  Receipt Date: 20111108
  Transmission Date: 20120403
  Serious: Yes (Life-Threatening)
  Sender: FDA-Public Use
  Company Number: FR-JNJFOC-20111011836

PATIENT
  Sex: Male
  Weight: 73 kg

DRUGS (3)
  1. VALIUM [Concomitant]
     Indication: ANXIETY
     Route: 048
  2. RISPERDAL [Suspect]
     Indication: ACCIDENTAL EXPOSURE
     Route: 048
     Dates: start: 20111025
  3. SERTRALINE HYDROCHLORIDE [Concomitant]
     Indication: DEPRESSION
     Route: 048

REACTIONS (2)
  - INTENTIONAL OVERDOSE [None]
  - ACCIDENTAL EXPOSURE [None]
